FAERS Safety Report 5379543-2 (Version None)
Quarter: 2007Q3

REPORT INFORMATION
  Report Type: 
  Country: None (occurrence: None)
  Receive Date: 20070703
  Receipt Date: 20070619
  Transmission Date: 20080115
  Serious: Yes (Hospitalization)
  Sender: FDA-Public Use
  Company Number: POMP-11104

PATIENT
  Age: 61 Year
  Sex: Female
  Weight: 55 kg

DRUGS (7)
  1. MYOZYME [Suspect]
     Indication: GLYCOGEN STORAGE DISEASE TYPE II
     Dosage: 20 MG/KG Q2WKS IV
     Route: 042
     Dates: start: 20060101
  2. EPINEPHRINE [Suspect]
     Indication: PROPHYLAXIS
     Dosage: 1 MG QD SC
     Route: 058
     Dates: start: 20070619, end: 20070619
  3. EVISTA [Concomitant]
  4. CALTRATE [Concomitant]
  5. ALPHAGAN [Concomitant]
  6. CENTRUM [Concomitant]
  7. ADVIL LIQUI-GELS [Concomitant]

REACTIONS (2)
  - INFUSION RELATED REACTION [None]
  - MYOCARDIAL INFARCTION [None]
